FAERS Safety Report 8896023 (Version 1)
Quarter: 2012Q4

REPORT INFORMATION
  Report Type: 
  Country: DK (occurrence: DK)
  Receive Date: 20121108
  Receipt Date: 20121108
  Transmission Date: 20130627
  Serious: Yes (Hospitalization)
  Sender: FDA-Public Use
  Company Number: DK-ASTRAZENECA-2012SE84026

PATIENT

DRUGS (1)
  1. SYMBICORT [Suspect]
     Dosage: 160/4.5, UNKNOWN
     Route: 055

REACTIONS (2)
  - Dyspnoea [Unknown]
  - Drug ineffective [Unknown]
